FAERS Safety Report 6735237-X (Version None)
Quarter: 2010Q2

REPORT INFORMATION
  Report Type: 
  Country: None (occurrence: None)
  Receive Date: 20100521
  Receipt Date: 20100512
  Transmission Date: 20101027
  Serious: Yes (Other)
  Sender: FDA-Public Use
  Company Number: US-NAPPMUNDI-GBR-2010-0006566

PATIENT
  Age: 65 Year
  Sex: Female

DRUGS (1)
  1. DILAUDID-HP [Suspect]
     Indication: BONE PAIN
     Dosage: 13 MG, DAILY
     Route: 037

REACTIONS (1)
  - GRANULOMA [None]
